FAERS Safety Report 7959430-3 (Version None)
Quarter: 2011Q4

REPORT INFORMATION
  Report Type: 
  Country: None (occurrence: None)
  Receive Date: 20111206
  Receipt Date: 20111201
  Transmission Date: 20120403
  Serious: No
  Sender: FDA-Public Use
  Company Number: US-PFIZER INC-2011293909

PATIENT
  Sex: Female
  Weight: 86.168 kg

DRUGS (5)
  1. IBUPROFEN (ADVIL) [Suspect]
  2. METAXALONE [Concomitant]
     Indication: BACK PAIN
     Dosage: UNK
  3. IBUPROFEN (ADVIL) [Suspect]
     Indication: BACK PAIN
  4. IBUPROFEN (ADVIL) [Suspect]
     Indication: HEADACHE
     Dosage: 200 MG, AS NEEDED
     Route: 048
     Dates: end: 20110501
  5. IBUPROFEN (ADVIL) [Suspect]
     Indication: NECK PAIN

REACTIONS (1)
  - NAUSEA [None]
